FAERS Safety Report 6034636-1 (Version None)
Quarter: 2009Q1

REPORT INFORMATION
  Report Type: 
  Country: None (occurrence: None)
  Receive Date: 20090109
  Receipt Date: 20090109
  Transmission Date: 20090719
  Serious: Yes (Hospitalization)
  Sender: FDA-Public Use
  Company Number: None

PATIENT
  Sex: Female

DRUGS (7)
  1. ZOMETA [Suspect]
     Indication: BREAST CANCER METASTATIC
     Dosage: 4 MG EVERY 3 WEEKS IV
     Route: 042
     Dates: start: 20020101, end: 20030101
  2. COUMADIN [Concomitant]
  3. ATENOLOL [Concomitant]
  4. ARIMIDEX [Concomitant]
  5. PERCOCET [Concomitant]
  6. TAMOXAFIN [Concomitant]
  7. ARIMIDEX [Concomitant]

REACTIONS (4)
  - GINGIVAL RECESSION [None]
  - JAW DISORDER [None]
  - RESORPTION BONE INCREASED [None]
  - SECRETION DISCHARGE [None]
